FAERS Safety Report 7814143-3 (Version None)
Quarter: 2011Q4

REPORT INFORMATION
  Report Type: 
  Country: None (occurrence: None)
  Receive Date: 20111014
  Receipt Date: 20111010
  Transmission Date: 20120403
  Serious: No
  Sender: FDA-Public Use
  Company Number: US-PFIZER INC-2011242372

PATIENT
  Sex: Male
  Weight: 86.168 kg

DRUGS (7)
  1. XIFAXAN [Concomitant]
     Dosage: 550 MG, UNK
  2. BENZYLPENICILLOYL-POLYLYSINE [Suspect]
     Dosage: UNK
  3. PERCOCET [Concomitant]
     Dosage: 10-325 MG
  4. NADOLOL [Concomitant]
     Dosage: 20 MG, UNK
  5. NEXIUM [Concomitant]
     Dosage: 20 MG, UNK
  6. LACTULOSE [Concomitant]
     Dosage: 20 GM/30
  7. LEXAPRO [Concomitant]
     Dosage: 10 MG, UNK

REACTIONS (1)
  - DRUG HYPERSENSITIVITY [None]
